FAERS Safety Report 9714424 (Version 1)
Quarter: 2013Q4

REPORT INFORMATION
  Report Type: Spontaneous
  Country: US (occurrence: US)
  Receive Date: 20131126
  Receipt Date: 20131126
  Transmission Date: 20140711
  Serious: No
  Sender: FDA-Public Use
  Company Number: US-BIOGENIDEC-2013BI074155

PATIENT
  Age: 52 Year
  Sex: Female
  Weight: 58 kg

DRUGS (12)
  1. TECFIDERA [Suspect]
     Indication: MULTIPLE SCLEROSIS
     Route: 048
     Dates: start: 20130713
  2. TECFIDERA [Suspect]
     Indication: MULTIPLE SCLEROSIS
     Route: 048
     Dates: start: 20130720
  3. TECFIDERA [Suspect]
     Indication: MULTIPLE SCLEROSIS
     Dates: end: 20131031
  4. VITAMIN D [Concomitant]
  5. VITAMIN C [Concomitant]
  6. CALCIUM [Concomitant]
  7. POTASSIUM [Concomitant]
  8. OMEGA 3 [Concomitant]
  9. NUCYNTA [Concomitant]
  10. AMLODIPINE BESYLATE [Concomitant]
  11. BACLOFEN [Concomitant]
  12. NEURONTIN [Concomitant]

REACTIONS (2)
  - Dysgeusia [Unknown]
  - Flushing [Unknown]
